FAERS Safety Report 5191922-5 (Version None)
Quarter: 2006Q4

REPORT INFORMATION
  Report Type: 
  Country: None (occurrence: None)
  Receive Date: 20061227
  Receipt Date: 20061215
  Transmission Date: 20070319
  Serious: Yes (Other)
  Sender: FDA-Public Use
  Company Number: US-AVENTIS-200620218US

PATIENT
  Sex: Female

DRUGS (4)
  1. LASIX [Suspect]
     Dosage: DOSE: UNK
  2. PLAVIX [Concomitant]
     Dosage: DOSE: UNK
  3. VYTORIN [Concomitant]
     Dosage: DOSE: UNK
  4. SPIRONOLACTONE [Concomitant]
     Dosage: DOSE: UNK

REACTIONS (3)
  - CORONARY ARTERY DISEASE [None]
  - CORONARY ARTERY OCCLUSION [None]
  - MICROANGIOPATHY [None]
